FAERS Safety Report 7904059-6 (Version None)
Quarter: 2011Q4

REPORT INFORMATION
  Report Type: 
  Country: None (occurrence: None)
  Receive Date: 20111109
  Receipt Date: 20111104
  Transmission Date: 20120403
  Serious: Yes (Disabling, Other)
  Sender: FDA-Public Use
  Company Number: BR-PFIZER INC-2011098725

PATIENT
  Age: 81 Year
  Sex: Female
  Weight: 50 kg

DRUGS (7)
  1. AMLODIPINE [Concomitant]
     Indication: HYPERTENSION
     Dosage: 2.5 MG, 1X/DAY
     Dates: start: 20080101
  2. LINSEED OIL [Concomitant]
     Indication: ROUTINE HEALTH MAINTENANCE
     Dosage: ONE TABLET (UNSPECIFIED DOSAGE) TWICE DAILY
     Dates: start: 20080101
  3. VARENICLINE TARTRATE [Suspect]
     Dosage: 1 MG, 1X/DAY
     Route: 048
     Dates: start: 20110101, end: 20110101
  4. VARENICLINE TARTRATE [Suspect]
     Dosage: UNK (ONE TABLET),EVERY 12 HOURS
     Route: 048
     Dates: start: 20110101, end: 20110501
  5. VITAMIN D [Concomitant]
     Indication: ROUTINE HEALTH MAINTENANCE
     Dosage: UNK(15 DROPS), DAILY
     Dates: start: 20080101
  6. VARENICLINE TARTRATE [Suspect]
     Indication: SMOKING CESSATION THERAPY
     Dosage: UNK
     Route: 048
     Dates: start: 20110429, end: 20110101
  7. VARENICLINE TARTRATE [Suspect]
     Dosage: UNK
     Dates: start: 20110101, end: 20110101

REACTIONS (4)
  - DEPRESSION [None]
  - FEELING ABNORMAL [None]
  - TOOTH DISORDER [None]
  - VOMITING [None]
